FAERS Safety Report 4709636-1 (Version None)
Quarter: 2005Q3

REPORT INFORMATION
  Report Type: 
  Country: None (occurrence: None)
  Receive Date: 20050706
  Receipt Date: 20050706
  Transmission Date: 20060218
  Serious: Yes (Hospitalization, Disabling)
  Sender: FDA-Public Use
  Company Number: None

PATIENT
  Sex: Female
  Weight: 58.9676 kg

DRUGS (2)
  1. DURACEF     500 MG [Suspect]
     Indication: SINUS DISORDER
     Dosage: 04/11/2005     04/12/2005   ORAL
     Route: 048
  2. LEVAQUIN [Suspect]
     Dosage: 4/13/2005     04/13/2005   ORAL
     Route: 048

REACTIONS (2)
  - ERYTHEMA MULTIFORME [None]
  - HYPERSENSITIVITY [None]
